FAERS Safety Report 9576966 (Version 1)
Quarter: 2013Q4

REPORT INFORMATION
  Report Type: Spontaneous
  Country: US (occurrence: US)
  Receive Date: 20131001
  Receipt Date: 20131001
  Transmission Date: 20140711
  Serious: No
  Sender: FDA-Public Use
  Company Number: US-AMGEN-USASP2013005135

PATIENT
  Sex: Female

DRUGS (10)
  1. ENBREL [Suspect]
     Indication: PSORIATIC ARTHROPATHY
     Dosage: 50 MG, QWK
     Route: 058
  2. METHOTREXATE [Concomitant]
     Dosage: 2.5 MG, UNK
  3. TRAMADOL HCL [Concomitant]
     Dosage: 50 MG, UNK
  4. VITAMIN B12                        /00056201/ [Concomitant]
     Dosage: 500 MUG, UNK
  5. LEVOTHYROXIN [Concomitant]
     Dosage: 25 MUG, UNK
  6. IRON [Concomitant]
     Dosage: 18 MG, UNK
  7. FLINTSTONES COMPLETE [Concomitant]
     Dosage: UNK
  8. CALCIUM [Concomitant]
     Dosage: 500 MG, UNK
  9. FOLIC ACID [Concomitant]
     Dosage: UNK
  10. VITAMIN D                          /00107901/ [Concomitant]
     Dosage: 400 UNIT, UNK

REACTIONS (2)
  - Oral herpes [Unknown]
  - Nasopharyngitis [Unknown]
